FAERS Safety Report 7607240 (Version 3)
Quarter: 2018Q1

REPORT INFORMATION
  Report Type: Report from Study
  Country: US (occurrence: US)
  Receive Date: 20100927
  Receipt Date: 20180102
  Transmission Date: 20180509
  Serious: Yes (Death, Other)
  Sender: FDA-Public Use
  Company Number: US-BRISTOL-MYERS SQUIBB COMPANY-15301567

PATIENT
  Age: 56 Year
  Sex: Male
  Weight: 120.7 kg

DRUGS (4)
  1. CETUXIMAB. [Suspect]
     Active Substance: CETUXIMAB
     Indication: OESOPHAGEAL ADENOCARCINOMA
     Dosage: 250MG/M2 IV ONCE A WEEK:6WEEKS,
     Route: 042
     Dates: start: 20100810, end: 20100914
  2. RADIATION THERAPY [Suspect]
     Active Substance: RADIATION THERAPY
     Indication: OESOPHAGEAL ADENOCARCINOMA
     Dosage: DURA:28DYS  EXTERNAL BEAM:3D  1DF:54.32 GY  NO OF FRACTIONS: 27  NO OF ELASPSED DAYS: 39
     Route: 065
     Dates: start: 20100810, end: 20100917
  3. PACLITAXEL. [Suspect]
     Active Substance: PACLITAXEL
     Indication: OESOPHAGEAL ADENOCARCINOMA
     Dosage: 50MG/M2 IV ONCE A WEEK :6WKS.
     Route: 042
     Dates: start: 20100810, end: 20100914
  4. CISPLATIN. [Suspect]
     Active Substance: CISPLATIN
     Indication: OESOPHAGEAL ADENOCARCINOMA
     Dosage: 25MG/M2:ONCE A WEEK :6 WEEKS  DOSE ADJUSTED DAY 22   RETURNED TO FULL DOSE DAY 29
     Route: 065
     Dates: start: 20100810, end: 20100914

REACTIONS (1)
  - Myocardial infarction [Fatal]

NARRATIVE: CASE EVENT DATE: 20100923
